FAERS Safety Report 4338545-5 (Version None)
Quarter: 2004Q2

REPORT INFORMATION
  Report Type: 
  Country: None (occurrence: None)
  Receive Date: 20040407
  Receipt Date: 20040325
  Transmission Date: 20050107
  Serious: Yes (Death, Other)
  Sender: FDA-Public Use
  Company Number: 2004017849

PATIENT
  Age: 19 Year
  Sex: Male
  Weight: 68 kg

DRUGS (7)
  1. ZELDOX [Suspect]
     Indication: SCHIZOPHRENIA
     Dosage: 20 MG (DAILY), INTRAMUSCULAR
     Route: 030
     Dates: start: 20040303, end: 20040305
  2. CLONAZEPAM [Concomitant]
  3. FLUPENTIXOL (FLUPENTIXOL) [Concomitant]
  4. ZUCLOPENTIXOL (ZUCLOPENTIXOL) [Concomitant]
  5. HALOPERIDOL [Concomitant]
  6. CARBAMAZEPINE [Concomitant]
  7. RISPERIDONE [Concomitant]

REACTIONS (3)
  - ARTERIAL THROMBOSIS LIMB [None]
  - CARDIAC ARREST [None]
  - PULMONARY EMBOLISM [None]
